FAERS Safety Report 10194106 (Version 1)
Quarter: 2014Q2

REPORT INFORMATION
  Report Type: Spontaneous
  Country: US (occurrence: US)
  Receive Date: 20140524
  Receipt Date: 20140524
  Transmission Date: 20141212
  Serious: No
  Sender: FDA-Public Use
  Company Number: US-SANOFI-AVENTIS-2013SA065799

PATIENT
  Age: 53 Year
  Sex: Male
  Weight: 120.2 kg

DRUGS (5)
  1. LANTUS SOLOSTAR [Suspect]
     Dosage: DOSE:50 UNIT(S)
     Route: 051
     Dates: start: 20130218, end: 20130701
  2. SOLOSTAR [Suspect]
     Dates: start: 20130218, end: 20130701
  3. PREVACID [Concomitant]
     Indication: GASTROOESOPHAGEAL REFLUX DISEASE
     Route: 065
     Dates: start: 2004
  4. LISINOPRIL [Concomitant]
     Route: 065
     Dates: start: 2013
  5. APIDRA [Concomitant]
     Route: 065
     Dates: start: 2013

REACTIONS (3)
  - Weight increased [Recovered/Resolved]
  - Fatigue [Recovered/Resolved]
  - Hypersomnia [Recovered/Resolved]
